FAERS Safety Report 9237546 (Version 1)
Quarter: 2013Q2

REPORT INFORMATION
  Report Type: Spontaneous
  Country: CA (occurrence: CA)
  Receive Date: 20130418
  Receipt Date: 20130418
  Transmission Date: 20140414
  Serious: Yes (Other)
  Sender: FDA-Public Use
  Company Number: CA-AMGEN-CANSP2013026108

PATIENT
  Age: 78 Year
  Sex: Female

DRUGS (6)
  1. ENBREL [Suspect]
     Indication: RHEUMATOID ARTHRITIS
     Dosage: 50 MG, UNK
     Dates: start: 20111123
  2. METHOTREXATE [Concomitant]
     Dosage: UNK
  3. HYDROXYCHLOROQUINE [Concomitant]
     Dosage: UNK
  4. METOPROLOL [Concomitant]
     Dosage: UNK
  5. ATACAND PLUS [Concomitant]
     Dosage: UNK
  6. ADALAT [Concomitant]
     Dosage: UNK

REACTIONS (3)
  - Fibrosis [Unknown]
  - Nasopharyngitis [Recovered/Resolved]
  - Lower respiratory tract infection [Recovered/Resolved]
